FAERS Safety Report 24135627 (Version 4)
Quarter: 2024Q3

REPORT INFORMATION
  Report Type: Spontaneous
  Country: DE (occurrence: DE)
  Receive Date: 20240725
  Receipt Date: 20240819
  Transmission Date: 20241017
  Serious: Yes (Other)
  Sender: NOVARTIS
  Company Number: DE-002147023-NVSC2024DE151922

PATIENT
  Sex: Female
  Weight: 62 kg

DRUGS (1)
  1. GILENYA [Suspect]
     Active Substance: FINGOLIMOD HYDROCHLORIDE
     Indication: Multiple sclerosis
     Dosage: 0.5 ML, QD
     Route: 048
     Dates: start: 2011

REACTIONS (7)
  - Hypogammaglobulinaemia [Not Recovered/Not Resolved]
  - Vaccination failure [Recovered/Resolved]
  - Seizure [Not Recovered/Not Resolved]
  - Bite [Unknown]
  - Osteoporotic fracture [Not Recovered/Not Resolved]
  - Epilepsy [Unknown]
  - Blood albumin decreased [Recovered/Resolved]

NARRATIVE: CASE EVENT DATE: 20200101
